FAERS Safety Report 15832162 (Version 1)
Quarter: 2019Q1

REPORT INFORMATION
  Report Type: Report from Study
  Country: US (occurrence: US)
  Receive Date: 20190116
  Receipt Date: 20190116
  Transmission Date: 20190417
  Serious: Yes (Hospitalization, Other)
  Sender: FDA-Public Use
  Company Number: US-SA-2019SA006644

PATIENT
  Age: 62 Year
  Sex: Male

DRUGS (4)
  1. INSULIN GLARGINE [Suspect]
     Active Substance: INSULIN GLARGINE
     Dosage: 10 U, QD
     Route: 058
  2. INSULIN LISPRO [Concomitant]
     Active Substance: INSULIN LISPRO
     Dosage: 10 U, UNK
  3. INSULIN GLARGINE [Suspect]
     Active Substance: INSULIN GLARGINE
     Indication: TYPE 2 DIABETES MELLITUS
     Dosage: 15 U, QD
     Route: 058
  4. INSULIN GLARGINE [Suspect]
     Active Substance: INSULIN GLARGINE
     Dosage: 15 U, QD
     Route: 058

REACTIONS (7)
  - Blood glucose decreased [Recovered/Resolved]
  - Arterial occlusive disease [Recovered/Resolved]
  - Renal failure [Not Recovered/Not Resolved]
  - Device occlusion [Unknown]
  - Cardiac failure congestive [Not Recovered/Not Resolved]
  - Limb injury [Recovered/Resolved]
  - Diabetic ulcer [Recovered/Resolved]

NARRATIVE: CASE EVENT DATE: 2014
